FAERS Safety Report 6064349-1 (Version None)
Quarter: 2009Q1

REPORT INFORMATION
  Report Type: 
  Country: None (occurrence: None)
  Receive Date: 20090203
  Receipt Date: 20090203
  Transmission Date: 20090719
  Serious: Yes (Hospitalization)
  Sender: FDA-Public Use
  Company Number: None

PATIENT
  Age: 53 Year
  Sex: Female
  Weight: 92.9874 kg

DRUGS (4)
  1. ANASTROZOLE [Suspect]
     Indication: BREAST CANCER
     Dosage: 1MG PO QD
     Route: 048
     Dates: end: 20081124
  2. AZDO530 [Suspect]
     Indication: BREAST CANCER
     Dosage: 175MG PO QD
     Route: 048
     Dates: end: 20081201
  3. STUDY DRUG: ANASTRAZOLE [Concomitant]
  4. STUDY DRUG: AZDO530 [Concomitant]

REACTIONS (6)
  - BACTERIA BLOOD IDENTIFIED [None]
  - BACTERIA URINE IDENTIFIED [None]
  - ESCHERICHIA INFECTION [None]
  - HAEMOGLOBIN DECREASED [None]
  - PLATELET COUNT DECREASED [None]
  - WHITE BLOOD CELL COUNT DECREASED [None]
